FAERS Safety Report 10532155 (Version 1)
Quarter: 2014Q4

REPORT INFORMATION
  Report Type: Spontaneous
  Country: DE (occurrence: DE)
  Receive Date: 20141021
  Receipt Date: 20141021
  Transmission Date: 20150529
  Serious: Yes (Other)
  Sender: FDA-Public Use
  Company Number: DE-BAUSCH-BL-2014-006810

PATIENT
  Age: 32 Year
  Sex: Female
  Weight: 53 kg

DRUGS (3)
  1. HYLO-VISION [Concomitant]
     Indication: PRODUCT USED FOR UNKNOWN INDICATION
  2. HYLO-COMOD [Concomitant]
     Indication: PRODUCT USED FOR UNKNOWN INDICATION
  3. PILOMANN 1% [Suspect]
     Active Substance: PILOCARPINE
     Indication: INTRAOCULAR PRESSURE INCREASED
     Dosage: 1 DROP EVERY 4 - 5 HOURS
     Dates: start: 201405

REACTIONS (2)
  - Corneal endothelial cell loss [Recovering/Resolving]
  - Corneal disorder [Recovering/Resolving]

NARRATIVE: CASE EVENT DATE: 201405
